FAERS Safety Report 22034636 (Version 1)
Quarter: 2023Q1

REPORT INFORMATION
  Report Type: Spontaneous
  Country: US (occurrence: US)
  Receive Date: 20230224
  Receipt Date: 20230224
  Transmission Date: 20230418
  Serious: No
  Sender: FDA-Public Use
  Company Number: US-PFIZER INC-202300081200

PATIENT
  Age: 80 Year
  Sex: Female
  Weight: 62.6 kg

DRUGS (1)
  1. PAXLOVID [Suspect]
     Active Substance: NIRMATRELVIR\RITONAVIR
     Indication: COVID-19 treatment
     Dosage: [PF-07321332 300 MG]/[RITONAVIR 100 MG]; 2X/DAY
     Route: 048
     Dates: start: 202302, end: 202302

REACTIONS (5)
  - Dysgeusia [Recovered/Resolved]
  - Abdominal discomfort [Recovered/Resolved]
  - Oral pain [Recovered/Resolved]
  - Lip pain [Recovering/Resolving]
  - Off label use [Unknown]

NARRATIVE: CASE EVENT DATE: 20230201
